FAERS Safety Report 20998798 (Version 1)
Quarter: 2022Q2

REPORT INFORMATION
  Report Type: Spontaneous
  Country: US (occurrence: US)
  Receive Date: 20220623
  Receipt Date: 20220623
  Transmission Date: 20220721
  Serious: No
  Sender: FDA-Public Use
  Company Number: US-BioDelivery Sciences International-2022BDSI0173

PATIENT
  Age: 47 Year
  Sex: Female
  Weight: 83.990 kg

DRUGS (17)
  1. BELBUCA [Suspect]
     Active Substance: BUPRENORPHINE HYDROCHLORIDE
     Indication: Pain
     Route: 002
     Dates: start: 201912, end: 20220319
  2. BELBUCA [Suspect]
     Active Substance: BUPRENORPHINE HYDROCHLORIDE
     Route: 002
     Dates: start: 20220320, end: 20220419
  3. BELBUCA [Suspect]
     Active Substance: BUPRENORPHINE HYDROCHLORIDE
     Route: 002
     Dates: start: 20220420
  4. SPIRONOLACTONE [Concomitant]
     Active Substance: SPIRONOLACTONE
     Indication: Alopecia
     Route: 065
  5. SPIRONOLACTONE [Concomitant]
     Active Substance: SPIRONOLACTONE
     Indication: Hypertension
  6. METOPROLOL [Concomitant]
     Active Substance: METOPROLOL
     Indication: Arrhythmia
     Route: 065
  7. METOPROLOL [Concomitant]
     Active Substance: METOPROLOL
     Indication: Hypertension
  8. HYDROCHLOROTHIAZIDE\LISINOPRIL [Concomitant]
     Active Substance: HYDROCHLOROTHIAZIDE\LISINOPRIL
     Indication: Hypertension
     Dosage: 10 MG / 12.5 MG, UNKNOWN
     Route: 065
  9. TRAZODONE [Concomitant]
     Active Substance: TRAZODONE HYDROCHLORIDE
     Indication: Product used for unknown indication
     Dosage: AT NIGHT
     Route: 065
  10. PANTOPRAZOLE [Concomitant]
     Active Substance: PANTOPRAZOLE
     Indication: Product used for unknown indication
     Route: 065
  11. ESTRADIOL [Concomitant]
     Active Substance: ESTRADIOL
     Indication: Product used for unknown indication
     Dosage: UNKNOWN
     Route: 065
  12. FETZIMA [Concomitant]
     Active Substance: LEVOMILNACIPRAN HYDROCHLORIDE
     Indication: Product used for unknown indication
     Route: 065
  13. PERCOCET [Concomitant]
     Active Substance: ACETAMINOPHEN\OXYCODONE HYDROCHLORIDE
     Indication: Breakthrough pain
     Dosage: 7.5 MG/ 325 MG, UNKNOWN
     Route: 065
     Dates: end: 20220318
  14. PERCOCET [Concomitant]
     Active Substance: ACETAMINOPHEN\OXYCODONE HYDROCHLORIDE
     Dosage: 7.5 MG/ 325 MG, UNKNOWN
     Route: 065
     Dates: start: 20220319, end: 20220418
  15. PERCOCET [Concomitant]
     Active Substance: ACETAMINOPHEN\OXYCODONE HYDROCHLORIDE
     Dosage: 7.5 MG/ 325 MG, UNKNOWN
     Route: 065
     Dates: start: 20220419
  16. DICYCLOMINE HYDROCHLORIDE [Concomitant]
     Active Substance: DICYCLOMINE HYDROCHLORIDE
     Indication: Gastrointestinal pain
  17. DICYCLOMINE HYDROCHLORIDE [Concomitant]
     Active Substance: DICYCLOMINE HYDROCHLORIDE
     Indication: Diarrhoea

REACTIONS (9)
  - Drug ineffective [Unknown]
  - Therapeutic response decreased [Unknown]
  - Drug screen negative [Unknown]
  - Wrong technique in product usage process [Recovered/Resolved]
  - Poor quality product administered [Unknown]
  - Product colour issue [Unknown]
  - Product adhesion issue [Unknown]
  - Product solubility abnormal [Unknown]
  - Oral administration complication [Unknown]

NARRATIVE: CASE EVENT DATE: 20220320
